FAERS Safety Report 4355508-4 (Version None)
Quarter: 2004Q2

REPORT INFORMATION
  Report Type: 
  Country: None (occurrence: None)
  Receive Date: 20040503
  Receipt Date: 20030917
  Transmission Date: 20050107
  Serious: Yes (Other)
  Sender: FDA-Public Use
  Company Number: PHEH2003US08488

PATIENT
  Age: 71 Year
  Sex: Male

DRUGS (3)
  1. LOTREL [Suspect]
     Indication: HYPERTENSION
     Dates: start: 20000101, end: 20000101
  2. LIPITOR [Concomitant]
  3. CELEBREX [Concomitant]

REACTIONS (2)
  - BLOOD CREATININE INCREASED [None]
  - BLOOD UREA INCREASED [None]
